FAERS Safety Report 9219685 (Version 1)
Quarter: 2013Q2

REPORT INFORMATION
  Report Type: Spontaneous
  Country: FR (occurrence: FR)
  Receive Date: 20130409
  Receipt Date: 20130409
  Transmission Date: 20140414
  Serious: Yes (Death)
  Sender: FDA-Public Use
  Company Number: FR-ROCHE-1206756

PATIENT
  Age: 50 Year
  Sex: Male

DRUGS (1)
  1. ACTILYSE [Suspect]
     Indication: CEREBROVASCULAR ACCIDENT
     Route: 042
     Dates: start: 20100124, end: 20100124

REACTIONS (2)
  - Cerebrovascular accident [Fatal]
  - Drug ineffective [Fatal]
